FAERS Safety Report 4941488-7 (Version None)
Quarter: 2006Q1

REPORT INFORMATION
  Report Type: 
  Country: None (occurrence: None)
  Receive Date: 20060310
  Receipt Date: 20060310
  Transmission Date: 20060701
  Serious: Yes (Life-Threatening, Hospitalization)
  Sender: FDA-Public Use
  Company Number: None

PATIENT
  Age: 84 Year
  Sex: Male

DRUGS (11)
  1. COUMADIN [Suspect]
     Indication: HEART VALVE REPLACEMENT
     Dosage: 10-20MG PO DAILY  (THERAPY DATES: PTA - 10/1/05)
     Route: 048
     Dates: end: 20051001
  2. LODINE [Concomitant]
  3. TORSEMIDE [Concomitant]
  4. POTASSIUM CHLORIDE [Concomitant]
  5. SPIRONOLACTONE [Concomitant]
  6. FLOMAX [Concomitant]
  7. DIGOXIN [Concomitant]
  8. O2 [Concomitant]
  9. ZAROXOLYN [Concomitant]
  10. COMBIVENT [Concomitant]
  11. INFALEX [Concomitant]

REACTIONS (1)
  - UPPER GASTROINTESTINAL HAEMORRHAGE [None]
